FAERS Safety Report 7150287-X (Version None)
Quarter: 2010Q4

REPORT INFORMATION
  Report Type: 
  Country: None (occurrence: None)
  Receive Date: 20101123
  Receipt Date: 20100507
  Transmission Date: 20110411
  Serious: Yes (Hospitalization, Other)
  Sender: FDA-Public Use
  Company Number: 2010SP026331

PATIENT
  Age: 31 Year
  Sex: Female
  Weight: 82.5547 kg

DRUGS (1)
  1. NUVARING [Suspect]
     Indication: CONTRACEPTION
     Dates: start: 20070531, end: 20080101

REACTIONS (17)
  - AFFECTIVE DISORDER [None]
  - DEEP VEIN THROMBOSIS [None]
  - EMBOLISM VENOUS [None]
  - GASTROOESOPHAGEAL REFLUX DISEASE [None]
  - GLUCOSE TOLERANCE IMPAIRED [None]
  - HEADACHE [None]
  - HUMAN PAPILLOMA VIRUS TEST POSITIVE [None]
  - JOINT SPRAIN [None]
  - POLLAKIURIA [None]
  - PULMONARY EMBOLISM [None]
  - PULMONARY INFARCTION [None]
  - SEASONAL ALLERGY [None]
  - SINUS DISORDER [None]
  - SINUS TACHYCARDIA [None]
  - SLEEP DISORDER [None]
  - SMEAR CERVIX ABNORMAL [None]
  - SNORING [None]
